FAERS Safety Report 22061470 (Version 1)
Quarter: 2023Q1

REPORT INFORMATION
  Report Type: Spontaneous
  Country: SE (occurrence: SE)
  Receive Date: 20230304
  Receipt Date: 20230304
  Transmission Date: 20230418
  Serious: Yes (Hospitalization)
  Sender: FDA-Public Use
  Company Number: SE-ALLERGAN-2232376US

PATIENT
  Age: 67 Year
  Sex: Male
  Weight: 74 kg

DRUGS (3)
  1. CARBIDOPA\LEVODOPA [Suspect]
     Active Substance: CARBIDOPA\LEVODOPA
     Indication: Parkinson^s disease
     Dosage: CONTINUOUS DOSE NIGHT PUMP: REDUCED FROM 2.1M/H TO 1.6ML/H, JEJUNAL
     Route: 050
     Dates: start: 202209
  2. CARBIDOPA\LEVODOPA [Suspect]
     Active Substance: CARBIDOPA\LEVODOPA
     Dosage: UNK, JEJUNAL
     Route: 050
     Dates: start: 20220509, end: 2022
  3. BOTOX [Suspect]
     Active Substance: ONABOTULINUMTOXINA
     Indication: Micturition urgency
     Dosage: UNK UNK, SINGLE
     Route: 065

REACTIONS (8)
  - Adverse event [Not Recovered/Not Resolved]
  - Incoherent [Recovering/Resolving]
  - Abnormal dreams [Not Recovered/Not Resolved]
  - Inflammation [Recovering/Resolving]
  - Gastric ulcer [Unknown]
  - Fall [Recovered/Resolved]
  - Wound [Recovering/Resolving]
  - Haematochezia [Not Recovered/Not Resolved]

NARRATIVE: CASE EVENT DATE: 20220917
